FAERS Safety Report 10080234 (Version 1)
Quarter: 2014Q2

REPORT INFORMATION
  Report Type: Spontaneous
  Country: CA (occurrence: CA)
  Receive Date: 20140415
  Receipt Date: 20140415
  Transmission Date: 20141212
  Serious: Yes (Hospitalization, Other)
  Sender: FDA-Public Use
  Company Number: CA-009507513-1404CAN007665

PATIENT
  Age: 66 Year
  Sex: Female

DRUGS (1)
  1. EMEND [Suspect]
     Indication: NEOPLASM MALIGNANT
     Dosage: UNK, QD
     Route: 048
     Dates: start: 20140326

REACTIONS (1)
  - Myocardial infarction [Recovered/Resolved]
